FAERS Safety Report 16303612 (Version 1)
Quarter: 2019Q2

REPORT INFORMATION
  Report Type: Spontaneous
  Country: US (occurrence: US)
  Receive Date: 20190405
  Receipt Date: 20190405
  Transmission Date: 20190711
  Serious: Yes (Hospitalization)
  Sender: FDA-Public Use
  Company Number: None

PATIENT
  Age: 67 Year
  Sex: Male
  Weight: 97.9 kg

DRUGS (3)
  1. 5-FLUOROURACIL (5-FU) [Suspect]
     Active Substance: FLUOROURACIL
     Dates: end: 20190320
  2. LEUCOVORIN CALCIUM. [Suspect]
     Active Substance: LEUCOVORIN CALCIUM
     Dates: end: 20190320
  3. ELOXATIN [Suspect]
     Active Substance: OXALIPLATIN
     Dates: end: 20190320

REACTIONS (7)
  - Dyspnoea [None]
  - Ascites [None]
  - Hyponatraemia [None]
  - Clostridium difficile infection [None]
  - Diarrhoea [None]
  - Weight increased [None]
  - Enterococcal infection [None]

NARRATIVE: CASE EVENT DATE: 20190325
